FAERS Safety Report 8488506-X (Version None)
Quarter: 2012Q3

REPORT INFORMATION
  Report Type: 
  Country: None (occurrence: None)
  Receive Date: 20120705
  Receipt Date: 20120625
  Transmission Date: 20120928
  Serious: Yes (Other)
  Sender: FDA-Public Use
  Company Number: US-ASTRAZENECA-2011SE74079

PATIENT
  Age: 67 Year
  Sex: Female
  Weight: 54.4 kg

DRUGS (4)
  1. ASPIRIN [Concomitant]
  2. SYMBICORT [Suspect]
     Route: 055
  3. NEXIUM [Suspect]
     Indication: INCREASED UPPER AIRWAY SECRETION
     Route: 048
     Dates: start: 20100101
  4. VITAMIN TAB [Concomitant]

REACTIONS (5)
  - CEREBROVASCULAR ACCIDENT [None]
  - DIZZINESS [None]
  - EYE DISORDER [None]
  - BALANCE DISORDER [None]
  - PRODUCT USED FOR UNKNOWN INDICATION [None]
